FAERS Safety Report 4395433-6 (Version None)
Quarter: 2004Q3

REPORT INFORMATION
  Report Type: 
  Country: None (occurrence: None)
  Receive Date: 20040713
  Receipt Date: 20040701
  Transmission Date: 20050211
  Serious: Yes (Other)
  Sender: FDA-Public Use
  Company Number: PHRM2004FR02278

PATIENT
  Age: 66 Year
  Sex: Male

DRUGS (1)
  1. LIORESAL [Suspect]
     Indication: NYSTAGMUS
     Dosage: 35 MG/DAY
     Route: 048

REACTIONS (3)
  - ARRHYTHMIA [None]
  - BRADYCARDIA [None]
  - DYSPNOEA [None]
